FAERS Safety Report 16253306 (Version 3)
Quarter: 2019Q4

REPORT INFORMATION
  Report Type: Spontaneous
  Country: US (occurrence: US)
  Receive Date: 20190429
  Receipt Date: 20191029
  Transmission Date: 20200122
  Serious: Yes (Death, Hospitalization, Other)
  Sender: FDA-Public Use
  Company Number: US-VIIV HEALTHCARE LIMITED-US2019AMR076533

PATIENT
  Age: 67 Year
  Sex: Female

DRUGS (3)
  1. JULUCA [Suspect]
     Active Substance: DOLUTEGRAVIR SODIUM\RILPIVIRINE HYDROCHLORIDE
     Indication: HIV INFECTION
     Dosage: UNK
     Dates: start: 20190417
  2. METOPROLOL. [Suspect]
     Active Substance: METOPROLOL
  3. ATRIPLA [Suspect]
     Active Substance: EFAVIRENZ\EMTRICITABINE\TENOFOVIR DISOPROXIL FUMARATE
     Indication: PRODUCT USED FOR UNKNOWN INDICATION
     Dosage: UNK

REACTIONS (12)
  - Encephalopathy [Unknown]
  - Rash [Unknown]
  - Stevens-Johnson syndrome [Unknown]
  - Condition aggravated [Unknown]
  - Renal impairment [Unknown]
  - Hypertension [Unknown]
  - Bacterial infection [Unknown]
  - Hypothermia [Unknown]
  - Death [Fatal]
  - Urine output decreased [Unknown]
  - Renal failure [Unknown]
  - Mental impairment [Unknown]

NARRATIVE: CASE EVENT DATE: 20190418
